FAERS Safety Report 6930337-3 (Version None)
Quarter: 2010Q3

REPORT INFORMATION
  Report Type: 
  Country: None (occurrence: None)
  Receive Date: 20100818
  Receipt Date: 20100806
  Transmission Date: 20110219
  Serious: Yes (Hospitalization)
  Sender: FDA-Public Use
  Company Number: US-PFIZER INC-9406422

PATIENT
  Age: 18 Year
  Sex: Female
  Weight: 48.99 kg

DRUGS (5)
  1. ZOLOFT [Interacting]
     Indication: DEPRESSION
     Dosage: 200 MG, 1X/DAY
     Route: 048
  2. LIDOCAINE HYDROCHLORIDE [Interacting]
     Indication: ANALGESIC THERAPY
     Dosage: 20 ML OF 1.5%
     Route: 042
  3. MIDAZOLAM HCL [Suspect]
     Indication: SEDATION
     Dosage: 3 MG, SINGLE
     Route: 042
  4. FENTANYL [Suspect]
     Indication: SEDATION
     Dosage: 75 UG, SINGLE
     Route: 042
  5. CEFAMANDOLE SODIUM [Concomitant]
     Dosage: 1 G, UNK
     Route: 042

REACTIONS (2)
  - DRUG INTERACTION [None]
  - SEROTONIN SYNDROME [None]
